FAERS Safety Report 13023913 (Version 3)
Quarter: 2017Q1

REPORT INFORMATION
  Report Type: Spontaneous
  Country: None (occurrence: US)
  Receive Date: 20161213
  Receipt Date: 20170104
  Transmission Date: 20170428
  Serious: No
  Sender: FDA-Public Use
  Company Number: US-RARE DISEASE THERAPEUTICS, INC.-1060745

PATIENT
  Age: 10 Year
  Sex: Female
  Weight: 57.7 kg

DRUGS (6)
  1. VITAMIN B6 [Concomitant]
     Active Substance: PYRIDOXINE HYDROCHLORIDE
  2. VITAMIN B12 [Concomitant]
     Active Substance: CYANOCOBALAMIN
  3. METANX [Concomitant]
     Active Substance: LEVOMEFOLATE CALCIUM\METHYLCOBALAMIN\PYRIDOXAL PHOSPHATE ANHYDROUS
  4. HCU EXPRESS [Concomitant]
  5. CYSTADANE [Suspect]
     Active Substance: BETAINE
     Indication: CYSTATHIONINE BETA-SYNTHASE DEFICIENCY
     Dates: start: 20140718
  6. FOLIC ACID. [Concomitant]
     Active Substance: FOLIC ACID

REACTIONS (2)
  - Overdose [None]
  - Sinusitis [Recovered/Resolved]

NARRATIVE: CASE EVENT DATE: 20140718
